FAERS Safety Report 6151018-2 (Version None)
Quarter: 2009Q2

REPORT INFORMATION
  Report Type: 
  Country: None (occurrence: None)
  Receive Date: 20090410
  Receipt Date: 20090227
  Transmission Date: 20091009
  Serious: No
  Sender: FDA-Public Use
  Company Number: A0770695A

PATIENT
  Age: 52 Year
  Sex: Female

DRUGS (5)
  1. TYKERB [Suspect]
     Indication: BREAST CANCER
     Dosage: 6TAB PER DAY
     Route: 048
     Dates: start: 20090221
  2. FEMARA [Concomitant]
  3. PAIN MEDICATION [Concomitant]
  4. VITAMINS [Concomitant]
  5. DIABETES MEDICATION [Concomitant]

REACTIONS (2)
  - DIARRHOEA [None]
  - FATIGUE [None]
